FAERS Safety Report 15675173 (Version 1)
Quarter: 2018Q4

REPORT INFORMATION
  Report Type: Spontaneous
  Country: US (occurrence: US)
  Receive Date: 20181119
  Receipt Date: 20181119
  Transmission Date: 20190205
  Serious: No
  Sender: FDA-Public Use
  Company Number: None

PATIENT
  Age: 57 Year
  Sex: Female

DRUGS (1)
  1. TIZANIDINE CAP 2MG [Suspect]
     Active Substance: TIZANIDINE
     Dates: start: 2017, end: 2018

REACTIONS (1)
  - Insomnia [None]

NARRATIVE: CASE EVENT DATE: 20181101
